FAERS Safety Report 5798072-5 (Version None)
Quarter: 2008Q2

REPORT INFORMATION
  Report Type: 
  Country: None (occurrence: None)
  Receive Date: 20080620
  Receipt Date: 20080229
  Transmission Date: 20081010
  Serious: Yes (Other)
  Sender: FDA-Public Use
  Company Number: 14097794

PATIENT
  Sex: Female

DRUGS (2)
  1. EMSAM [Suspect]
     Dosage: 6 MILLIGRAM,24 HOUR
  2. LAMICTAL [Concomitant]

REACTIONS (1)
  - SYNCOPE [None]
